FAERS Safety Report 5170507-0 (Version None)
Quarter: 2006Q4

REPORT INFORMATION
  Report Type: 
  Country: None (occurrence: None)
  Receive Date: 20061204
  Receipt Date: 20061130
  Transmission Date: 20070319
  Serious: Yes (Death)
  Sender: FDA-Public Use
  Company Number: THQ2006A01128

PATIENT
  Age: 84 Year
  Sex: Female

DRUGS (7)
  1. LANSOPRAZOLE [Suspect]
     Dosage: 14 MG (1 D); PER ORAL
     Route: 048
     Dates: end: 20061026
  2. SERMION (NICERGOLINE) (TABLETS) [Suspect]
     Dosage: 30 MG (10 MG, 3 IN 1 D); PER ORAL
     Route: 048
     Dates: end: 20061026
  3. MODOPAR (MADOPAR) [Suspect]
     Indication: TREMOR
     Dosage: 250 MG (125 MG, 2 IN 1 D) PER ORAL
     Route: 048
     Dates: start: 20010101, end: 20061026
  4. XENAZINE (TETRABENAZINE) TABLETS [Suspect]
     Indication: BALLISMUS
     Dosage: 12.5 MG (1 D) PER ORAL
     Route: 048
     Dates: start: 20061027, end: 20061028
  5. XENAZINE (TETRABENAZINE) TABLETS [Suspect]
     Indication: HUNTINGTON'S CHOREA
     Dosage: 12.5 MG (1 D) PER ORAL
     Route: 048
     Dates: start: 20061027, end: 20061028
  6. STILNOX (ZOLPIDEM) (TABLETS) [Suspect]
     Dosage: 10 MG (1 D); PER ORAL
     Route: 048
  7. TRIVASTAL (PIRIBEDIL) (TABLETS) [Suspect]
     Dosage: 100 MG (50 MG, 2 IN 1 D) PER ORAL
     Route: 048
     Dates: start: 20010101, end: 20061026

REACTIONS (6)
  - BALLISMUS [None]
  - CARDIAC FAILURE [None]
  - FATIGUE [None]
  - HAEMORRHAGIC STROKE [None]
  - MOVEMENT DISORDER [None]
  - SUDDEN DEATH [None]
